FAERS Safety Report 9204418 (Version 1)
Quarter: 2013Q2

REPORT INFORMATION
  Report Type: Spontaneous
  Country: HU (occurrence: HU)
  Receive Date: 20130402
  Receipt Date: 20130402
  Transmission Date: 20140414
  Serious: Yes (Hospitalization, Other)
  Sender: FDA-Public Use
  Company Number: HU-ROCHE-1208762

PATIENT
  Age: 66 Year
  Sex: Female
  Weight: 68 kg

DRUGS (9)
  1. MABTHERA [Suspect]
     Indication: RHEUMATOID ARTHRITIS
     Route: 041
  2. NEBIVOLOL [Concomitant]
  3. ASACOL [Concomitant]
  4. MODUXIN [Concomitant]
  5. OMEPRAZOL [Concomitant]
  6. CLOPIDOGREL [Concomitant]
  7. AMBROXOL [Concomitant]
  8. RETAFYLLIN [Concomitant]
  9. ATORVASTATIN [Concomitant]

REACTIONS (1)
  - Lung neoplasm malignant [Recovered/Resolved]
